FAERS Safety Report 5691509-1 (Version None)
Quarter: 2008Q2

REPORT INFORMATION
  Report Type: 
  Country: None (occurrence: None)
  Receive Date: 20080401
  Receipt Date: 20080325
  Transmission Date: 20081010
  Serious: No
  Sender: FDA-Public Use
  Company Number: APP200800218

PATIENT
  Age: 58 Year
  Sex: Male
  Weight: 79 kg

DRUGS (1)
  1. HEPARIN SODIUM INJECTION [Suspect]
     Indication: ANGIOPLASTY
     Dosage: 4000 USP UNITS, ONCE, INTRA-ARTERIAL
     Route: 013
     Dates: start: 20080325, end: 20080325

REACTIONS (1)
  - ANAPHYLACTIC REACTION [None]
